FAERS Safety Report 8764357 (Version 1)
Quarter: 2012Q4

REPORT INFORMATION
  Report Type: 
  Country: MX (occurrence: MX)
  Receive Date: 20120831
  Receipt Date: 20120831
  Transmission Date: 20130627
  Serious: Yes (Death, Hospitalization)
  Sender: FDA-Public Use
  Company Number: PHHY2010MX094467

PATIENT
  Sex: Male

DRUGS (1)
  1. GLIVEC [Suspect]
     Dates: start: 20070827

REACTIONS (1)
  - Hepatic cirrhosis [Fatal]
